FAERS Safety Report 16839552 (Version 3)
Quarter: 2020Q2

REPORT INFORMATION
  Report Type: Spontaneous
  Country: US (occurrence: US)
  Receive Date: 20190923
  Receipt Date: 20200407
  Transmission Date: 20200713
  Serious: No
  Sender: FDA-Public Use
  Company Number: US-PFIZER INC-2019408265

PATIENT
  Sex: Male

DRUGS (4)
  1. LUBIPROSTONE [Suspect]
     Active Substance: LUBIPROSTONE
     Dosage: UNK
  2. TETRACYCLINE HCL [Suspect]
     Active Substance: TETRACYCLINE HYDROCHLORIDE
     Dosage: UNK
  3. LEVAQUIN [Suspect]
     Active Substance: LEVOFLOXACIN
     Dosage: UNK
  4. AMITIZA [Suspect]
     Active Substance: LUBIPROSTONE
     Dosage: UNK

REACTIONS (1)
  - Drug hypersensitivity [Unknown]
